FAERS Safety Report 10349997 (Version 1)
Quarter: 2014Q3

REPORT INFORMATION
  Report Type: Spontaneous
  Country: US (occurrence: US)
  Receive Date: 20140730
  Receipt Date: 20140730
  Transmission Date: 20150326
  Serious: No
  Sender: FDA-Public Use
  Company Number: US-TEVA-497849USA

PATIENT
  Age: 20 Year
  Sex: Female
  Weight: 52.21 kg

DRUGS (2)
  1. PARAGARD T380A [Suspect]
     Active Substance: COPPER
     Indication: CONTRACEPTION
     Route: 015
     Dates: start: 20140709, end: 20140723
  2. XANAX [Concomitant]
     Active Substance: ALPRAZOLAM
     Indication: ANXIETY

REACTIONS (4)
  - Device expulsion [Recovered/Resolved]
  - Back pain [Unknown]
  - Metrorrhagia [Unknown]
  - Pelvic pain [Unknown]

NARRATIVE: CASE EVENT DATE: 20140721
